FAERS Safety Report 5742692-0 (Version None)
Quarter: 2008Q2

REPORT INFORMATION
  Report Type: 
  Country: None (occurrence: None)
  Receive Date: 20080519
  Receipt Date: 20080512
  Transmission Date: 20081010
  Serious: Yes (Congenital Anomaly)
  Sender: FDA-Public Use
  Company Number: A0728395B

PATIENT

DRUGS (3)
  1. COMBIVIR [Suspect]
     Indication: HIV INFECTION
  2. ATRIPLA [Concomitant]
     Indication: HIV INFECTION
     Dates: end: 20080108
  3. KALETRA [Concomitant]
     Indication: HIV INFECTION

REACTIONS (2)
  - ANENCEPHALY [None]
  - DRUG EXPOSURE DURING PREGNANCY [None]
